FAERS Safety Report 6819089-5 (Version None)
Quarter: 2010Q3

REPORT INFORMATION
  Report Type: 
  Country: None (occurrence: None)
  Receive Date: 20100707
  Receipt Date: 20100629
  Transmission Date: 20110219
  Serious: Yes (Hospitalization, Other)
  Sender: FDA-Public Use
  Company Number: US-ELI_LILLY_AND_COMPANY-US200907000484

PATIENT
  Sex: Male
  Weight: 90.703 kg

DRUGS (12)
  1. BYETTA [Suspect]
     Indication: TYPE 2 DIABETES MELLITUS
     Dosage: 5 UG, 2/D
     Route: 058
     Dates: start: 20060801, end: 20070101
  2. BYETTA [Suspect]
     Dosage: 10 UG, 2/D
     Route: 058
     Dates: start: 20070101, end: 20070101
  3. BYETTA [Suspect]
     Dosage: 5 UG, 2/D
     Route: 058
     Dates: start: 20070101, end: 20090101
  4. ACTOS [Concomitant]
     Indication: TYPE 2 DIABETES MELLITUS
  5. METFORMIN HCL [Concomitant]
     Indication: TYPE 2 DIABETES MELLITUS
     Dates: start: 20090601
  6. LOTREL [Concomitant]
     Indication: BLOOD PRESSURE
  7. CRESTOR [Concomitant]
     Indication: BLOOD CHOLESTEROL
  8. ACIPHEX [Concomitant]
     Indication: REFLUX OESOPHAGITIS
  9. AMLODIPINE BESYLATE [Concomitant]
     Indication: PAIN
  10. LEVAQUIN [Concomitant]
     Indication: URINARY TRACT INFECTION
  11. GLIMEPIRIDE [Concomitant]
  12. CIALIS [Concomitant]

REACTIONS (5)
  - BLOOD GLUCOSE DECREASED [None]
  - BLOOD GLUCOSE INCREASED [None]
  - CHOLELITHIASIS [None]
  - PANCREATITIS RELAPSING [None]
  - WEIGHT DECREASED [None]
